FAERS Safety Report 5834879-3 (Version None)
Quarter: 2008Q3

REPORT INFORMATION
  Report Type: 
  Country: None (occurrence: None)
  Receive Date: 20080801
  Receipt Date: 20080721
  Transmission Date: 20090109
  Serious: Yes (Hospitalization, Other)
  Sender: FDA-Public Use
  Company Number: GXKR2008JP06875

PATIENT
  Age: 63 Year
  Sex: Female

DRUGS (3)
  1. PREDNISOLONE [Suspect]
     Indication: JUVENILE ARTHRITIS
     Dosage: 7.5 MG, QD 50 MG, QD 40 MG, QD
  2. CYCLOSPORINE [Suspect]
     Indication: JUVENILE ARTHRITIS
     Dosage: 100 MG, QD, ORAL
     Route: 048
  3. INSULIN INJECTION (INSULIN) [Concomitant]

REACTIONS (7)
  - BLOOD IMMUNOGLOBULIN G DECREASED [None]
  - CYTOMEGALOVIRUS ANTIGEN POSITIVE [None]
  - LUNG ABSCESS [None]
  - LYMPHOCYTE COUNT DECREASED [None]
  - NOCARDIOSIS [None]
  - PULMONARY CAVITATION [None]
  - PYREXIA [None]
